FAERS Safety Report 6831540-3 (Version None)
Quarter: 2010Q3

REPORT INFORMATION
  Report Type: 
  Country: None (occurrence: None)
  Receive Date: 20100712
  Receipt Date: 20100629
  Transmission Date: 20110219
  Serious: Yes (Hospitalization, Other)
  Sender: FDA-Public Use
  Company Number: PHHY2010BR42552

PATIENT
  Sex: Male

DRUGS (3)
  1. LEPONEX [Suspect]
     Indication: SCHIZOPHRENIA
     Dosage: 4 TABLETS/DAY
     Route: 048
     Dates: start: 20070101
  2. NEOZINE [Concomitant]
     Indication: SCHIZOPHRENIA
     Dosage: 1 TABLET/DAY
     Route: 048
     Dates: start: 20070101
  3. RIVOTRIL [Concomitant]
     Indication: SCHIZOPHRENIA
     Dosage: 1 TABLET DAILY
     Route: 048
     Dates: start: 20070101

REACTIONS (1)
  - AGGRESSION [None]
